FAERS Safety Report 22137028 (Version 1)
Quarter: 2023Q1

REPORT INFORMATION
  Report Type: Spontaneous
  Country: EG (occurrence: EG)
  Receive Date: 20230324
  Receipt Date: 20230324
  Transmission Date: 20230417
  Serious: Yes (Hospitalization)
  Sender: FDA-Public Use
  Company Number: EG-002147023-NVSC2023EG064389

PATIENT
  Sex: Female

DRUGS (1)
  1. ACLASTA [Suspect]
     Active Substance: ZOLEDRONIC ACID
     Indication: Product used for unknown indication
     Dosage: UNK
     Route: 065
     Dates: start: 20230312

REACTIONS (15)
  - Chest discomfort [Unknown]
  - Joint swelling [Unknown]
  - COVID-19 [Unknown]
  - Toothache [Unknown]
  - Oedema peripheral [Unknown]
  - Influenza like illness [Unknown]
  - Musculoskeletal pain [Unknown]
  - Diarrhoea [Unknown]
  - Musculoskeletal stiffness [Unknown]
  - Pain [Unknown]
  - Pyrexia [Unknown]
  - Myalgia [Unknown]
  - Pain in jaw [Unknown]
  - Arthralgia [Unknown]
  - Eye pain [Unknown]

NARRATIVE: CASE EVENT DATE: 20230313
